FAERS Safety Report 9739439 (Version 2)
Quarter: 2013Q4

REPORT INFORMATION
  Report Type: Spontaneous
  Country: US (occurrence: US)
  Receive Date: 20131209
  Receipt Date: 20131213
  Transmission Date: 20140711
  Serious: No
  Sender: FDA-Public Use
  Company Number: US-009507513-1311USA011141

PATIENT
  Age: 51 Year
  Sex: Male

DRUGS (2)
  1. PEGINTRON [Suspect]
     Indication: LIVER DISORDER
     Dosage: 120MCG ONCE A WEEK, EVERY FRIDAY NIGHT
     Dates: start: 20130826
  2. ANALGESIC (UNSPECIFIED) [Concomitant]

REACTIONS (3)
  - Balance disorder [Not Recovered/Not Resolved]
  - Asthenia [Not Recovered/Not Resolved]
  - Product quality issue [Unknown]
